FAERS Safety Report 5145798-2 (Version None)
Quarter: 2006Q4

REPORT INFORMATION
  Report Type: 
  Country: None (occurrence: None)
  Receive Date: 20061108
  Receipt Date: 20061030
  Transmission Date: 20070319
  Serious: Yes (Other)
  Sender: FDA-Public Use
  Company Number: US-JNJFOC-20061006959

PATIENT
  Sex: Male

DRUGS (3)
  1. REMICADE [Suspect]
     Indication: COLITIS ULCERATIVE
     Route: 042
  2. AZATHIOPRINE [Suspect]
     Indication: COLITIS ULCERATIVE
  3. COLAZAL [Concomitant]
     Indication: COLITIS ULCERATIVE

REACTIONS (2)
  - CENTRAL NERVOUS SYSTEM LYMPHOMA [None]
  - INFUSION RELATED REACTION [None]
